FAERS Safety Report 22179936 (Version 2)
Quarter: 2023Q2

REPORT INFORMATION
  Report Type: Spontaneous
  Country: US (occurrence: US)
  Receive Date: 20230406
  Receipt Date: 20230515
  Transmission Date: 20230722
  Serious: Yes (Other)
  Sender: FDA-Public Use
  Company Number: US-SUN PHARMACEUTICAL INDUSTRIES LTD-2023R1-383922

PATIENT
  Age: 36 Year
  Sex: Female

DRUGS (1)
  1. DELTASONE [Suspect]
     Active Substance: PREDNISONE
     Indication: Urticaria
     Dosage: HIGH DOSE
     Route: 065

REACTIONS (1)
  - Drug ineffective [Unknown]
